FAERS Safety Report 8537787-2 (Version None)
Quarter: 2012Q3

REPORT INFORMATION
  Report Type: 
  Country: None (occurrence: None)
  Receive Date: 20120725
  Receipt Date: 20120712
  Transmission Date: 20120928
  Serious: No
  Sender: FDA-Public Use
  Company Number: US-ASTRAZENECA-2012SE40100

PATIENT
  Age: 80 Year
  Sex: Female

DRUGS (6)
  1. CRESTOR [Suspect]
     Route: 048
  2. TRIMTERENE HCTZ [Concomitant]
  3. LISINOPRIL [Suspect]
     Route: 048
  4. METOPROLOL SUCCINATE [Suspect]
     Route: 048
  5. CRESTOR [Suspect]
     Dosage: EVERY OTHER DAY
     Route: 048
  6. LYRICA [Concomitant]

REACTIONS (5)
  - DRUG INEFFECTIVE [None]
  - BLOOD PRESSURE INCREASED [None]
  - HEART RATE INCREASED [None]
  - INTENTIONAL DRUG MISUSE [None]
  - NERVE INJURY [None]
